FAERS Safety Report 6231475-3 (Version None)
Quarter: 2009Q2

REPORT INFORMATION
  Report Type: 
  Country: None (occurrence: None)
  Receive Date: 20090616
  Receipt Date: 20090608
  Transmission Date: 20091009
  Serious: Yes (Hospitalization)
  Sender: FDA-Public Use
  Company Number: A0764587A

PATIENT
  Age: 57 Year
  Sex: Male
  Weight: 148.2 kg

DRUGS (8)
  1. AVANDIA [Suspect]
     Indication: TYPE 2 DIABETES MELLITUS
     Dosage: 8MG PER DAY
     Route: 048
     Dates: start: 20010317, end: 20061229
  2. GLUCOPHAGE [Concomitant]
  3. METFORMIN HCL [Concomitant]
  4. MAGNESIUM OXIDE [Concomitant]
  5. HYDROCORTISONE [Concomitant]
  6. PREVACID [Concomitant]
  7. CATAPRES [Concomitant]
  8. CLONIDINE [Concomitant]

REACTIONS (4)
  - BLINDNESS UNILATERAL [None]
  - CEREBROVASCULAR ACCIDENT [None]
  - SUBARACHNOID HAEMORRHAGE [None]
  - THROMBOSIS [None]
